FAERS Safety Report 4982987-1 (Version None)
Quarter: 2006Q2

REPORT INFORMATION
  Report Type: 
  Country: None (occurrence: None)
  Receive Date: 20060420
  Receipt Date: 20060407
  Transmission Date: 20061013
  Serious: Yes (Other)
  Sender: FDA-Public Use
  Company Number: 2006049018

PATIENT
  Sex: Female
  Weight: 66.2252 kg

DRUGS (4)
  1. DILANTIN [Suspect]
     Indication: CONVULSION
     Dosage: 200 MG (100 MG, 1 D), UNKNOWN
     Route: 048
     Dates: start: 19750101
  2. ATENOLOL [Concomitant]
  3. PHENOBARBITAL TAB [Concomitant]
  4. LAMICTAL [Concomitant]

REACTIONS (3)
  - GRAND MAL CONVULSION [None]
  - PETIT MAL EPILEPSY [None]
  - TREATMENT NONCOMPLIANCE [None]
